FAERS Safety Report 24794224 (Version 1)
Quarter: 2024Q4

REPORT INFORMATION
  Report Type: Other
  Country: US (occurrence: US)
  Receive Date: 20241231
  Receipt Date: 20241231
  Transmission Date: 20250114
  Serious: Yes (Hospitalization, Other)
  Sender: APPCO PHARMA LLC
  Company Number: US-Appco Pharma LLC-2168112

PATIENT
  Age: 38 Year

DRUGS (9)
  1. DOXYCYCLINE [Suspect]
     Active Substance: DOXYCYCLINE
     Indication: Achromobacter infection
  2. LEVOFLOXACIN [Suspect]
     Active Substance: LEVOFLOXACIN
  3. TIMOLOL [Concomitant]
     Active Substance: TIMOLOL\TIMOLOL MALEATE
  4. CEFTAZIDIME [Suspect]
     Active Substance: CEFTAZIDIME
  5. CEFEPIME [Suspect]
     Active Substance: CEFEPIME HYDROCHLORIDE
  6. CEFAZOLIN SODIUM [Suspect]
     Active Substance: CEFAZOLIN SODIUM
  7. SULFAMETHOXAZOLE AND TRIMETHOPRIM [Suspect]
     Active Substance: SULFAMETHOXAZOLE\TRIMETHOPRIM
  8. MEROPENEM [Suspect]
     Active Substance: MEROPENEM
  9. MINOCYCLINE [Suspect]
     Active Substance: MINOCYCLINE HYDROCHLORIDE

REACTIONS (1)
  - Drug ineffective [Unknown]
